FAERS Safety Report 6384243-6 (Version None)
Quarter: 2009Q3

REPORT INFORMATION
  Report Type: 
  Country: None (occurrence: None)
  Receive Date: 20090929
  Receipt Date: 20090918
  Transmission Date: 20100115
  Serious: Yes (Hospitalization, Other)
  Sender: FDA-Public Use
  Company Number: 2009AP003814

PATIENT
  Age: 16 Month
  Sex: Female

DRUGS (5)
  1. LAMOTRIGINE [Suspect]
     Indication: CONVULSION
     Dosage: 75 MG;BID PO
     Route: 048
  2. AUGMENTIN '125' [Suspect]
     Indication: INFLUENZA
     Dates: start: 19960101
  3. PHENOXYMETHYL PENICILLIN [Suspect]
  4. PHENYTOIN [Suspect]
     Indication: CONVULSION
     Dosage: 9 MG;QD
  5. FLUCONAZOLE [Concomitant]

REACTIONS (15)
  - ABNORMAL FAECES [None]
  - AUTISM [None]
  - AUTISM SPECTRUM DISORDER [None]
  - CANDIDIASIS [None]
  - CONVULSION [None]
  - DIARRHOEA [None]
  - DRUG INEFFECTIVE [None]
  - EPISTAXIS [None]
  - LACTOSE INTOLERANCE [None]
  - PHARYNGEAL OEDEMA [None]
  - RASH [None]
  - UPPER LIMB FRACTURE [None]
  - UPPER RESPIRATORY TRACT INFECTION [None]
  - URINARY RETENTION [None]
  - VOMITING PROJECTILE [None]
